FAERS Safety Report 6921603-6 (Version None)
Quarter: 2010Q3

REPORT INFORMATION
  Report Type: 
  Country: None (occurrence: None)
  Receive Date: 20100812
  Receipt Date: 20100803
  Transmission Date: 20110219
  Serious: Yes (Hospitalization, Disabling, Other)
  Sender: FDA-Public Use
  Company Number: US-MERCK-0804USA00794

PATIENT
  Age: 62 Year
  Sex: Female

DRUGS (1)
  1. FOSAMAX [Suspect]
     Indication: OSTEOPOROSIS
     Route: 048
     Dates: start: 20040701, end: 20060201

REACTIONS (50)
  - ABDOMINAL PAIN [None]
  - ADVERSE DRUG REACTION [None]
  - ANAEMIA [None]
  - ANXIETY [None]
  - ARTERIOSCLEROSIS CORONARY ARTERY [None]
  - ARTHRALGIA [None]
  - BACK PAIN [None]
  - BLOOD PRESSURE INCREASED [None]
  - BONE LESION [None]
  - CEREBRAL DISORDER [None]
  - CHEST PAIN [None]
  - CONVULSION [None]
  - DIARRHOEA [None]
  - DIZZINESS [None]
  - DYSPEPSIA [None]
  - DYSPNOEA EXERTIONAL [None]
  - ELECTROCARDIOGRAM ABNORMAL [None]
  - FALL [None]
  - FATIGUE [None]
  - GAIT DISTURBANCE [None]
  - GASTROENTERITIS [None]
  - GINGIVAL ABSCESS [None]
  - GINGIVAL INFECTION [None]
  - GINGIVAL PAIN [None]
  - HEADACHE [None]
  - HYPERCHOLESTEROLAEMIA [None]
  - IMPAIRED HEALING [None]
  - INFLUENZA [None]
  - LYMPHATIC DISORDER [None]
  - MAJOR DEPRESSION [None]
  - MALAISE [None]
  - MEMORY IMPAIRMENT [None]
  - MENINGEAL NEOPLASM [None]
  - MENINGIOMA BENIGN [None]
  - MYALGIA [None]
  - MYOCARDIAL ISCHAEMIA [None]
  - MYOSITIS [None]
  - NAUSEA [None]
  - NON-CARDIAC CHEST PAIN [None]
  - OSTEOARTHRITIS [None]
  - OSTEOMYELITIS [None]
  - OSTEONECROSIS OF JAW [None]
  - PYREXIA [None]
  - RHINITIS ALLERGIC [None]
  - ROAD TRAFFIC ACCIDENT [None]
  - SYNCOPE [None]
  - TOOTH ABSCESS [None]
  - TOOTH DISORDER [None]
  - TOOTHACHE [None]
  - WHITE BLOOD CELL COUNT INCREASED [None]
